FAERS Safety Report 6783708-2 (Version None)
Quarter: 2010Q2

REPORT INFORMATION
  Report Type: 
  Country: None (occurrence: None)
  Receive Date: 20100622
  Receipt Date: 20100610
  Transmission Date: 20101027
  Serious: Yes (Hospitalization)
  Sender: FDA-Public Use
  Company Number: FR-WYE-H15494510

PATIENT
  Sex: Female

DRUGS (12)
  1. INIPOMP [Suspect]
     Indication: HIATUS HERNIA
     Route: 048
  2. LASIX [Suspect]
     Indication: HYPERTENSION
     Route: 048
     Dates: end: 20090508
  3. STABLON [Concomitant]
     Indication: MAJOR DEPRESSION
     Route: 048
  4. ZYPREXA [Concomitant]
     Route: 048
  5. MAGNESIUM OXIDE [Concomitant]
  6. NORMACOL [Concomitant]
     Dosage: AS NEEDED
  7. SPASFON [Concomitant]
  8. DAFALGAN [Concomitant]
  9. DIMETICONE, ACTIVATED [Concomitant]
  10. CHARCOAL, ACTIVATED [Concomitant]
  11. FORTZAAR [Suspect]
     Indication: HYPERTENSION
     Dosage: 100 MG/12.5 MG FREQUENCY UNKNOWN
     Route: 048
     Dates: end: 20090508
  12. BONIVA [Concomitant]
     Indication: OSTEOPOROSIS
     Route: 048

REACTIONS (2)
  - HYPOKALAEMIA [None]
  - HYPONATRAEMIA [None]
